FAERS Safety Report 4689411-7 (Version None)
Quarter: 2005Q2

REPORT INFORMATION
  Report Type: 
  Country: None (occurrence: None)
  Receive Date: 20050608
  Receipt Date: 20050414
  Transmission Date: 20051028
  Serious: No
  Sender: FDA-Public Use
  Company Number: 2005-BP-06185BP

PATIENT
  Age: 84 Year
  Sex: Female

DRUGS (1)
  1. SPIRIVA [Suspect]
     Indication: CHRONIC OBSTRUCTIVE PULMONARY DISEASE
     Dosage: (18 MCG), IH
     Route: 055

REACTIONS (2)
  - CONDITION AGGRAVATED [None]
  - PULMONARY CONGESTION [None]
